FAERS Safety Report 9602705 (Version 1)
Quarter: 2013Q4

REPORT INFORMATION
  Report Type: Spontaneous
  Country: US (occurrence: US)
  Receive Date: 20131007
  Receipt Date: 20131007
  Transmission Date: 20140711
  Serious: No
  Sender: FDA-Public Use
  Company Number: US-PFIZER INC-2013286541

PATIENT
  Age: 53 Year
  Sex: Female
  Weight: 82.99 kg

DRUGS (4)
  1. CHANTIX [Suspect]
     Indication: SMOKING CESSATION THERAPY
     Dosage: 1 MG, 1X/DAY
     Route: 048
     Dates: start: 2013
  2. CHANTIX [Suspect]
     Dosage: 1.5 MG (ONE AND HALF TABLET OF 1MG), 1X/DAY
     Route: 048
     Dates: start: 2013
  3. FENTANYL [Concomitant]
     Indication: PAIN
     Dosage: 100 MG, DAILY
  4. OXYCODONE [Concomitant]
     Indication: PAIN
     Dosage: 30 MG, AS NEEDED

REACTIONS (3)
  - Abnormal dreams [Unknown]
  - Drug ineffective [Unknown]
  - Intentional drug misuse [Unknown]
